FAERS Safety Report 15697785 (Version 2)
Quarter: 2018Q4

REPORT INFORMATION
  Report Type: Spontaneous
  Country: FR (occurrence: FR)
  Receive Date: 20181207
  Receipt Date: 20181221
  Transmission Date: 20190205
  Serious: Yes (Hospitalization)
  Sender: FDA-Public Use
  Company Number: FR-REGENERON PHARMACEUTICALS, INC.-2018-47109

PATIENT

DRUGS (1)
  1. EYLEA [Suspect]
     Active Substance: AFLIBERCEPT
     Indication: PRODUCT USED FOR UNKNOWN INDICATION
     Dosage: UNK
     Route: 031
     Dates: start: 20181114

REACTIONS (4)
  - Visual acuity reduced [Unknown]
  - Endophthalmitis [Not Recovered/Not Resolved]
  - Corneal abscess [Unknown]
  - Retinal detachment [Unknown]

NARRATIVE: CASE EVENT DATE: 201811
